FAERS Safety Report 5206820-8 (Version None)
Quarter: 2006Q4

REPORT INFORMATION
  Report Type: 
  Country: None (occurrence: None)
  Receive Date: 20061031
  Receipt Date: 20060510
  Transmission Date: 20070319
  Serious: Yes (Hospitalization)
  Sender: FDA-Public Use
  Company Number: US017513

PATIENT
  Age: 75 Year
  Sex: Female
  Weight: 88.905 kg

DRUGS (11)
  1. PROVIGIL [Suspect]
     Indication: NARCOLEPSY
     Dosage: 200 MG, BID; ORAL
     Route: 048
     Dates: start: 20060331, end: 20060508
  2. PROVIGIL [Suspect]
     Indication: NARCOLEPSY
     Dosage: 200 MG, BID; ORAL
     Route: 048
     Dates: start: 20060510
  3. TOPROL-XL [Concomitant]
  4. ISOSORBIDE MN [Concomitant]
  5. BENAZEPRIL HYDROCHLORIDE [Concomitant]
  6. METFORMIN HCL [Concomitant]
  7. LIPITOR [Concomitant]
  8. PREVACID [Concomitant]
  9. FOSAMAX [Concomitant]
  10. TRAMADOL HCL [Concomitant]
  11. ARTHROTEC [Concomitant]

REACTIONS (2)
  - TREMOR [None]
  - VERTIGO [None]
